FAERS Safety Report 5829321-2 (Version None)
Quarter: 2008Q2

REPORT INFORMATION
  Report Type: 
  Country: None (occurrence: None)
  Receive Date: 20080601
  Receipt Date: 20080213
  Transmission Date: 20081010
  Serious: No
  Sender: FDA-Public Use
  Company Number: US200802004659

PATIENT
  Age: 69 Year
  Sex: Female

DRUGS (2)
  1. BYETTA [Suspect]
     Dosage: 5 UG, DAILY (1/D), SUBCUTANEOUS ; 5 UG, 2/D, SUBCUTANEOUS
     Route: 058
     Dates: start: 20071201, end: 20080128
  2. BYETTA [Suspect]
     Dosage: 5 UG, DAILY (1/D), SUBCUTANEOUS ; 5 UG, 2/D, SUBCUTANEOUS
     Route: 058
     Dates: start: 20080129

REACTIONS (3)
  - FEELING JITTERY [None]
  - HEADACHE [None]
  - HUNGER [None]
